FAERS Safety Report 16081781 (Version 12)
Quarter: 2022Q4

REPORT INFORMATION
  Report Type: Spontaneous
  Country: FR (occurrence: FR)
  Receive Date: 20190316
  Receipt Date: 20221115
  Transmission Date: 20230113
  Serious: Yes (Death, Other)
  Sender: FDA-Public Use
  Company Number: PHHY2019FR055349

PATIENT
  Age: 73 Year
  Sex: Male
  Weight: 74 kg

DRUGS (18)
  1. CIPROFLOXACIN [Suspect]
     Active Substance: CIPROFLOXACIN
     Indication: Infection
     Dosage: UNK
     Route: 065
     Dates: start: 20180921, end: 20180921
  2. IBRUTINIB [Suspect]
     Active Substance: IBRUTINIB
     Indication: Chronic lymphocytic leukaemia
     Dosage: UNK
     Route: 048
     Dates: start: 20170806
  3. IMBRUVICA [Suspect]
     Active Substance: IBRUTINIB
     Indication: Chronic lymphocytic leukaemia
     Dosage: UNK
     Route: 048
     Dates: start: 20170806, end: 20181009
  4. BACTRIM [Suspect]
     Active Substance: SULFAMETHOXAZOLE\TRIMETHOPRIM
     Indication: Infection
     Dosage: UNK
     Route: 065
     Dates: start: 20180923
  5. VENETOCLAX [Suspect]
     Active Substance: VENETOCLAX
     Indication: Chronic lymphocytic leukaemia
     Dosage: 20 MG
     Route: 048
     Dates: start: 20180911, end: 20180918
  6. VENETOCLAX [Suspect]
     Active Substance: VENETOCLAX
     Dosage: UNK
     Route: 048
  7. VENETOCLAX [Suspect]
     Active Substance: VENETOCLAX
     Dosage: 50 MG
     Route: 048
     Dates: start: 20180919, end: 20180925
  8. VENETOCLAX [Suspect]
     Active Substance: VENETOCLAX
     Dosage: 100 MG
     Route: 048
     Dates: start: 20180926, end: 20181002
  9. VENETOCLAX [Suspect]
     Active Substance: VENETOCLAX
     Dosage: UNK, QD
     Route: 048
     Dates: start: 20181003, end: 20181009
  10. VENETOCLAX [Suspect]
     Active Substance: VENETOCLAX
     Dosage: UNK, QD
     Route: 048
     Dates: start: 20181010
  11. TRIMETHOPRIM [Suspect]
     Active Substance: TRIMETHOPRIM
     Indication: Infection
     Dosage: UNK (SULFAMETHOXAZOLE)
     Route: 065
     Dates: start: 20180923
  12. CEFTAZIDIME [Concomitant]
     Active Substance: CEFTAZIDIME
     Indication: Infection
     Dosage: UNK
     Route: 065
     Dates: start: 20180921, end: 20180921
  13. CEFTAZIDIME [Concomitant]
     Active Substance: CEFTAZIDIME
     Indication: Antibiotic therapy
  14. ALLOPURINOL [Concomitant]
     Active Substance: ALLOPURINOL
     Indication: Hyperuricaemia
     Dosage: UNK
     Route: 065
     Dates: start: 20180907, end: 20181009
  15. ENOXAPARIN SODIUM [Concomitant]
     Active Substance: ENOXAPARIN SODIUM
     Indication: Anticoagulant therapy
     Dosage: UNK
     Route: 065
     Dates: start: 20180922, end: 20181011
  16. VALACYCLOVIR HYDROCHLORIDE [Concomitant]
     Active Substance: VALACYCLOVIR HYDROCHLORIDE
     Indication: Antiviral treatment
     Dosage: UNK
     Route: 065
     Dates: start: 20180908
  17. BUDESONIDE [Concomitant]
     Active Substance: BUDESONIDE
     Indication: Asthma
     Dosage: UNK
     Route: 065
     Dates: start: 20180907, end: 20180927
  18. BIMATOPROST\TIMOLOL [Concomitant]
     Active Substance: BIMATOPROST\TIMOLOL
     Indication: Glaucoma
     Dosage: UNK
     Route: 065
     Dates: start: 20180908, end: 20181011

REACTIONS (23)
  - Death [Fatal]
  - Respiratory distress [Recovered/Resolved with Sequelae]
  - Respiratory distress [Recovered/Resolved]
  - Hypertensive crisis [Recovered/Resolved]
  - Decubitus ulcer [Recovered/Resolved]
  - Hyperkalaemia [Not Recovered/Not Resolved]
  - Hypogammaglobulinaemia [Unknown]
  - Haematotoxicity [Unknown]
  - Rhinitis [Unknown]
  - Hyperkalaemia [Recovered/Resolved]
  - Infection [Unknown]
  - Hypertension [Unknown]
  - Splenomegaly [Unknown]
  - Diarrhoea [Recovered/Resolved]
  - Hypertensive crisis [Recovered/Resolved]
  - Pseudomonas infection [Unknown]
  - Pseudomonas infection [Recovered/Resolved]
  - Hyperkalaemia [Recovered/Resolved]
  - Oedema peripheral [Not Recovered/Not Resolved]
  - Hypocalcaemia [Not Recovered/Not Resolved]
  - Diarrhoea [Recovered/Resolved]
  - Off label use [Unknown]
  - Off label use [Recovered/Resolved]

NARRATIVE: CASE EVENT DATE: 20180901
